FAERS Safety Report 4437649-6 (Version None)
Quarter: 2004Q3

REPORT INFORMATION
  Report Type: 
  Country: None (occurrence: None)
  Receive Date: 20040827
  Receipt Date: 20040813
  Transmission Date: 20050211
  Serious: Yes (Hospitalization)
  Sender: FDA-Public Use
  Company Number: 2004228473AU

PATIENT
  Sex: Female

DRUGS (6)
  1. XALATAN [Suspect]
     Dosage: OPHTHALMIC
     Route: 047
  2. CARTIA XT [Concomitant]
  3. ZOCOR [Concomitant]
  4. KARVEA (IRBESARTAN) [Concomitant]
  5. TENOPT [Concomitant]
  6. AZOPT [Concomitant]

REACTIONS (2)
  - ARTERIAL BYPASS OPERATION [None]
  - VISUAL DISTURBANCE [None]
